FAERS Safety Report 9398439 (Version 1)
Quarter: 2013Q3

REPORT INFORMATION
  Report Type: Spontaneous
  Country: US (occurrence: US)
  Receive Date: 20130712
  Receipt Date: 20130712
  Transmission Date: 20140515
  Serious: No
  Sender: FDA-Public Use
  Company Number: US-GLAXOSMITHKLINE-A1022190A

PATIENT
  Age: 5 Year
  Sex: Female

DRUGS (7)
  1. FLOVENT [Suspect]
     Indication: ASTHMA
     Dosage: 2PUFF TWICE PER DAY
     Route: 055
     Dates: start: 2011
  2. ADVAIR [Suspect]
     Indication: ASTHMA
     Dosage: 2PUFF THREE TIMES PER DAY
     Route: 055
     Dates: start: 201205
  3. ALBUTEROL [Concomitant]
  4. BENADRYL [Concomitant]
  5. FLONASE [Concomitant]
  6. ZYRTEC [Concomitant]
  7. PREDNISONE [Concomitant]

REACTIONS (3)
  - Asthma [Not Recovered/Not Resolved]
  - Rash [Unknown]
  - Drug ineffective [Unknown]
